FAERS Safety Report 8904597 (Version 1)
Quarter: 2012Q4

REPORT INFORMATION
  Report Type: 
  Country: KR (occurrence: KR)
  Receive Date: 20121109
  Receipt Date: 20121109
  Transmission Date: 20130627
  Serious: Yes (Hospitalization)
  Sender: FDA-Public Use
  Company Number: KR-BAYER-2012-116657

PATIENT
  Age: 65 Year
  Sex: Male

DRUGS (2)
  1. ACETYLSALICYLIC ACID({=100 MG) [Suspect]
     Indication: CEREBROVASCULAR ACCIDENT PROPHYLAXIS
     Dosage: 100 mg, UNK
  2. ANTIHYPERTENSIVES [Concomitant]

REACTIONS (3)
  - Cerebral haematoma [None]
  - Aphasia [None]
  - Hemiparesis [None]
